FAERS Safety Report 8370104-X (Version None)
Quarter: 2012Q2

REPORT INFORMATION
  Report Type: 
  Country: None (occurrence: None)
  Receive Date: 20120518
  Receipt Date: 20120514
  Transmission Date: 20120825
  Serious: Yes (Other)
  Sender: FDA-Public Use
  Company Number: US-AMGEN-USASP2012030183

PATIENT
  Age: 64 Year
  Sex: Female

DRUGS (1)
  1. ENBREL [Suspect]
     Indication: RHEUMATOID ARTHRITIS
     Dosage: 50 MG, QWK
     Dates: start: 20091230

REACTIONS (8)
  - GAIT DISTURBANCE [None]
  - OEDEMA PERIPHERAL [None]
  - DIZZINESS [None]
  - FINGER DEFORMITY [None]
  - PARAESTHESIA [None]
  - PAIN IN EXTREMITY [None]
  - VISUAL ACUITY REDUCED [None]
  - HYPOAESTHESIA [None]
